FAERS Safety Report 16931086 (Version 1)
Quarter: 2019Q4

REPORT INFORMATION
  Report Type: Spontaneous
  Country: BE (occurrence: BE)
  Receive Date: 20191017
  Receipt Date: 20191017
  Transmission Date: 20200122
  Serious: Yes (Other)
  Sender: FDA-Public Use
  Company Number: BE-009507513-1908BEL006017

PATIENT
  Age: 48 Year
  Sex: Female

DRUGS (4)
  1. ZEPATIER [Suspect]
     Active Substance: ELBASVIR\GRAZOPREVIR
     Indication: HEPATITIS C VIRUS TEST POSITIVE
     Dosage: UNK, QD (ONCE DAIY)
     Route: 048
     Dates: start: 20190112, end: 20190330
  2. AACIFEMINE [Concomitant]
     Active Substance: ESTRIOL
     Dosage: 0.5 MILLIGRAM, BIW
     Route: 067
  3. ZEPATIER [Suspect]
     Active Substance: ELBASVIR\GRAZOPREVIR
     Indication: HEPATITIS C
  4. OESTROGEL [Concomitant]
     Active Substance: ESTRADIOL
     Dosage: 6 MICROGRAM PER GRAM, TWO TIMES A DAY 2
     Route: 062

REACTIONS (2)
  - Hepatitis C [Unknown]
  - Treatment failure [Not Recovered/Not Resolved]

NARRATIVE: CASE EVENT DATE: 20190719
